FAERS Safety Report 6437314-X (Version None)
Quarter: 2009Q4

REPORT INFORMATION
  Report Type: 
  Country: None (occurrence: None)
  Receive Date: 20091112
  Receipt Date: 20091106
  Transmission Date: 20100525
  Serious: Yes (Other)
  Sender: FDA-Public Use
  Company Number: US-ROCHE-667375

PATIENT
  Sex: Male
  Weight: 71.7 kg

DRUGS (4)
  1. INTERFERON ALFA [Suspect]
     Indication: RENAL CELL CARCINOMA
     Dosage: THERAPY HELD
     Route: 058
     Dates: start: 20090929
  2. INTERFERON ALFA [Suspect]
     Route: 058
     Dates: start: 20091104
  3. BEVACIZUMAB [Suspect]
     Indication: RENAL CELL CARCINOMA
     Route: 065
  4. BEVACIZUMAB [Suspect]
     Route: 065

REACTIONS (2)
  - FATIGUE [None]
  - TREMOR [None]
